FAERS Safety Report 21158497 (Version 1)
Quarter: 2022Q3

REPORT INFORMATION
  Report Type: Report from Study
  Country: US (occurrence: US)
  Receive Date: 20220801
  Receipt Date: 20220801
  Transmission Date: 20221026
  Serious: Yes (Hospitalization, Other)
  Sender: FDA-Public Use
  Company Number: US-BRISTOL-MYERS SQUIBB COMPANY-2022-077532

PATIENT
  Age: 62 Year
  Sex: Male
  Weight: 67.7 kg

DRUGS (3)
  1. POMALIDOMIDE [Suspect]
     Active Substance: POMALIDOMIDE
     Indication: Plasma cell myeloma
     Route: 048
     Dates: start: 20210206
  2. DARZALEX FASPRO [Concomitant]
     Active Substance: DARATUMUMAB\HYALURONIDASE-FIHJ
     Indication: Product used for unknown indication
     Route: 058
     Dates: start: 20210206
  3. Decadron Low dose [Concomitant]
     Indication: Product used for unknown indication
     Route: 048
     Dates: start: 20210206

REACTIONS (6)
  - Pyrexia [Not Recovered/Not Resolved]
  - Hypoxia [Unknown]
  - Pneumonia [Unknown]
  - Cough [Unknown]
  - Hypophosphataemia [Unknown]
  - Pneumonitis [Unknown]

NARRATIVE: CASE EVENT DATE: 20220717
